FAERS Safety Report 6055424-6 (Version None)
Quarter: 2009Q1

REPORT INFORMATION
  Report Type: 
  Country: None (occurrence: None)
  Receive Date: 20090128
  Receipt Date: 20090119
  Transmission Date: 20090719
  Serious: Yes (Other)
  Sender: FDA-Public Use
  Company Number: DE-JNJFOC-20081204518

PATIENT
  Sex: Female
  Weight: 77 kg

DRUGS (2)
  1. RISPERDAL [Suspect]
     Indication: SCHIZOPHRENIA, PARANOID TYPE
     Dosage: UNTIL FOUR WEEKS AGO
     Route: 048
  2. RISPERDAL CONSTA [Suspect]
     Indication: SCHIZOPHRENIA, PARANOID TYPE
     Route: 030

REACTIONS (4)
  - AKATHISIA [None]
  - EXTRAPYRAMIDAL DISORDER [None]
  - HOSPITALISATION [None]
  - PARKINSONISM [None]
